FAERS Safety Report 13428932 (Version 6)
Quarter: 2017Q2

REPORT INFORMATION
  Report Type: Spontaneous
  Country: US (occurrence: US)
  Receive Date: 20170411
  Receipt Date: 20170630
  Transmission Date: 20170830
  Serious: Yes (Life-Threatening, Hospitalization, Other)
  Sender: FDA-Public Use
  Company Number: US-JNJFOC-20170407987

PATIENT
  Age: 74 Year
  Sex: Female
  Weight: 89.81 kg

DRUGS (16)
  1. XARELTO [Suspect]
     Active Substance: RIVAROXABAN
     Indication: ATRIAL FIBRILLATION
     Route: 048
     Dates: start: 20170415
  2. XARELTO [Suspect]
     Active Substance: RIVAROXABAN
     Indication: CEREBROVASCULAR ACCIDENT PROPHYLAXIS
     Route: 048
     Dates: end: 20170313
  3. TESSALON [Concomitant]
     Active Substance: BENZONATATE
     Route: 065
     Dates: start: 20170201
  4. LASIX [Concomitant]
     Active Substance: FUROSEMIDE
     Route: 048
     Dates: start: 20161221
  5. ZYLOPRIM [Concomitant]
     Active Substance: ALLOPURINOL
     Route: 048
     Dates: start: 20161221
  6. LISINOPRIL. [Concomitant]
     Active Substance: LISINOPRIL
     Route: 065
  7. ZYRTEC [Concomitant]
     Active Substance: CETIRIZINE HYDROCHLORIDE
     Indication: MULTIPLE ALLERGIES
     Dosage: 1 TABLET ONE TIME A DAY AS NEEDED FOR ALLERGIES
     Route: 048
     Dates: start: 20150409
  8. MYCOSTATIN [Concomitant]
     Active Substance: NYSTATIN
     Dosage: 100000 UNIT/G POWDER
     Route: 061
     Dates: start: 20161230
  9. TENORMIN [Concomitant]
     Active Substance: ATENOLOL
     Route: 048
  10. PRILOSEC [Concomitant]
     Active Substance: OMEPRAZOLE MAGNESIUM
     Dosage: BEFORE A MEAL. ??DO NOT CRUSH.
     Route: 065
     Dates: start: 20161221
  11. XARELTO [Suspect]
     Active Substance: RIVAROXABAN
     Indication: CEREBROVASCULAR ACCIDENT PROPHYLAXIS
     Route: 048
     Dates: start: 20170415
  12. XARELTO [Suspect]
     Active Substance: RIVAROXABAN
     Indication: ATRIAL FIBRILLATION
     Route: 048
     Dates: end: 20170313
  13. TYLENOL [Concomitant]
     Active Substance: ACETAMINOPHEN
     Dosage: PRESCRIBED TO TAKE 2 TABLETS TWO TIMES A DAY. SHE TOOK ONCE A DAY.
     Route: 048
  14. METOPROLOL. [Concomitant]
     Active Substance: METOPROLOL
     Route: 065
  15. EFFEXOR [Concomitant]
     Active Substance: VENLAFAXINE HYDROCHLORIDE
     Dosage: WITH MEALS
     Route: 048
     Dates: start: 20170125
  16. LIPITOR [Concomitant]
     Active Substance: ATORVASTATIN CALCIUM
     Dosage: 1 TABLET AT BEDTIME
     Route: 048
     Dates: start: 20161221

REACTIONS (6)
  - Anaemia of chronic disease [Recovered/Resolved]
  - Atrial fibrillation [Recovering/Resolving]
  - Hypokalaemia [Unknown]
  - Upper gastrointestinal haemorrhage [Unknown]
  - Iron deficiency anaemia [Recovered/Resolved]
  - Haemorrhage [Recovered/Resolved]

NARRATIVE: CASE EVENT DATE: 2016
